FAERS Safety Report 23484962 (Version 1)
Quarter: 2024Q1

REPORT INFORMATION
  Report Type: Spontaneous
  Country: CN (occurrence: None)
  Receive Date: 20240206
  Receipt Date: 20240206
  Transmission Date: 20240409
  Serious: Yes (Hospitalization)
  Sender: FDA-Public Use
  Company Number: CN-ROCHE-3503661

PATIENT
  Age: 42 Year
  Sex: Female

DRUGS (1)
  1. XOFLUZA [Suspect]
     Active Substance: BALOXAVIR MARBOXIL
     Indication: Viral infection
     Route: 048
     Dates: start: 20240128, end: 20240128

REACTIONS (2)
  - Retching [Recovering/Resolving]
  - Steatorrhoea [Recovering/Resolving]

NARRATIVE: CASE EVENT DATE: 20240128
